FAERS Safety Report 19634709 (Version 2)
Quarter: 2021Q4

REPORT INFORMATION
  Report Type: Spontaneous
  Country: CA (occurrence: CA)
  Receive Date: 20210730
  Receipt Date: 20211228
  Transmission Date: 20220304
  Serious: Yes (Other)
  Sender: FDA-Public Use
  Company Number: CA-SA-SAC20210728000456

PATIENT
  Age: 51 Year
  Sex: Female

DRUGS (30)
  1. HYDROXYCHLOROQUINE SULFATE [Suspect]
     Active Substance: HYDROXYCHLOROQUINE SULFATE
     Indication: Product used for unknown indication
  2. ARAVA [Suspect]
     Active Substance: LEFLUNOMIDE
     Indication: Product used for unknown indication
  3. ATORVASTATIN CALCIUM [Suspect]
     Active Substance: ATORVASTATIN CALCIUM
     Indication: Product used for unknown indication
  4. ATORVASTATIN CALCIUM [Suspect]
     Active Substance: ATORVASTATIN CALCIUM
  5. AZATHIOPRINE [Suspect]
     Active Substance: AZATHIOPRINE
     Indication: Product used for unknown indication
  6. CELECOXIB [Suspect]
     Active Substance: CELECOXIB
     Indication: Product used for unknown indication
     Dosage: 200 MG, QD
  7. ENBREL [Suspect]
     Active Substance: ETANERCEPT
     Indication: Product used for unknown indication
     Dosage: 50 MG, QW
     Route: 058
  8. ENBREL [Suspect]
     Active Substance: ETANERCEPT
  9. HUMIRA [Suspect]
     Active Substance: ADALIMUMAB
     Indication: Rheumatoid arthritis
     Dosage: SOLUTION, CYCLICAL
     Route: 058
  10. HYDROXYCHLOROQUINE [Suspect]
     Active Substance: HYDROXYCHLOROQUINE
     Indication: Product used for unknown indication
  11. LEFLUNOMIDE [Suspect]
     Active Substance: LEFLUNOMIDE
     Indication: Product used for unknown indication
  12. LEFLUNOMIDE [Suspect]
     Active Substance: LEFLUNOMIDE
  13. METHOTREXATE [Suspect]
     Active Substance: METHOTREXATE
     Indication: Product used for unknown indication
     Dosage: UNK
     Route: 048
  14. METHOTREXATE [Suspect]
     Active Substance: METHOTREXATE
     Dosage: UNK
     Route: 058
  15. METHOTREXATE [Suspect]
     Active Substance: METHOTREXATE
     Dosage: UNK
     Route: 051
  16. ORENCIA [Suspect]
     Active Substance: ABATACEPT
     Indication: Product used for unknown indication
     Dosage: 750 MG, QW
  17. RITUXIMAB [Suspect]
     Active Substance: RITUXIMAB
     Indication: Product used for unknown indication
  18. RITUXIMAB [Suspect]
     Active Substance: RITUXIMAB
     Dosage: 2000 MG
     Route: 042
  19. RITUXIMAB [Suspect]
     Active Substance: RITUXIMAB
  20. SULFASALAZINE [Suspect]
     Active Substance: SULFASALAZINE
     Indication: Product used for unknown indication
  21. XELJANZ [Suspect]
     Active Substance: TOFACITINIB CITRATE
     Indication: Rheumatoid arthritis
     Dosage: 10 MG, QD
     Route: 048
  22. CANNABIS SATIVA FLOWERING TOP [Concomitant]
     Active Substance: CANNABIS SATIVA FLOWERING TOP
  23. PREDNISONE [Concomitant]
     Active Substance: PREDNISONE
     Indication: Synovitis
     Dosage: 7 MG, QD
  24. PREDNISONE [Concomitant]
     Active Substance: PREDNISONE
     Dosage: UNK
  25. TOFACITINIB [Concomitant]
     Active Substance: TOFACITINIB
  26. THYROID [Concomitant]
     Active Substance: LEVOTHYROXINE\LIOTHYRONINE
  27. CELEBREX [Suspect]
     Active Substance: CELECOXIB
  28. XELJANZ [Concomitant]
     Active Substance: TOFACITINIB CITRATE
  29. METHOTREXATE SODIUM [Suspect]
     Active Substance: METHOTREXATE SODIUM
  30. HUMIRA [Concomitant]
     Active Substance: ADALIMUMAB

REACTIONS (9)
  - Anaphylactic reaction [Unknown]
  - Blood cholesterol increased [Unknown]
  - Drug intolerance [Unknown]
  - Red blood cell sedimentation rate abnormal [Unknown]
  - Synovitis [Unknown]
  - C-reactive protein abnormal [Unknown]
  - Rash [Unknown]
  - Drug hypersensitivity [Unknown]
  - Drug ineffective [Unknown]
